FAERS Safety Report 7034602-3 (Version None)
Quarter: 2010Q4

REPORT INFORMATION
  Report Type: 
  Country: None (occurrence: None)
  Receive Date: 20101008
  Receipt Date: 20100928
  Transmission Date: 20110411
  Serious: Yes (Other)
  Sender: FDA-Public Use
  Company Number: US-JNJFOC-20100908458

PATIENT
  Sex: Female
  Weight: 52.16 kg

DRUGS (5)
  1. REMICADE [Suspect]
     Indication: RHEUMATOID ARTHRITIS
     Dosage: FOR ABOUT 9 YEARS
     Route: 042
  2. ASPIRIN [Concomitant]
  3. FOLIC ACID [Concomitant]
  4. METHOTREXATE [Concomitant]
  5. NAPROXEN [Concomitant]

REACTIONS (3)
  - ADULT T-CELL LYMPHOMA/LEUKAEMIA [None]
  - ARTHRALGIA [None]
  - FELTY'S SYNDROME [None]
